FAERS Safety Report 4465937-6 (Version None)
Quarter: 2004Q3

REPORT INFORMATION
  Report Type: 
  Country: None (occurrence: None)
  Receive Date: 20040930
  Receipt Date: 20040915
  Transmission Date: 20050211
  Serious: Yes (Hospitalization)
  Sender: FDA-Public Use
  Company Number: 2003AP04518

PATIENT
  Age: 83 Year
  Sex: Male

DRUGS (11)
  1. IRESSA [Suspect]
     Indication: NON-SMALL CELL LUNG CANCER
     Dosage: 250 MG DAILY PO
     Route: 048
     Dates: start: 20031113, end: 20031203
  2. ASPARA K [Concomitant]
  3. SENNOSIDE [Concomitant]
  4. MUCODYNE [Concomitant]
  5. PERSANTIN [Concomitant]
  6. NIKORANMART [Concomitant]
  7. CLARITH [Concomitant]
  8. NITRODERM [Concomitant]
  9. SELBEX [Concomitant]
  10. TAXOL [Concomitant]
  11. CARBOPLATIN [Concomitant]

REACTIONS (28)
  - ANORECTAL DISORDER [None]
  - ANOREXIA [None]
  - ARTHROPATHY [None]
  - CONDITION AGGRAVATED [None]
  - DIARRHOEA [None]
  - DRY SKIN [None]
  - DYSPNOEA EXERTIONAL [None]
  - ERYTHEMA [None]
  - EYE DISCHARGE [None]
  - EYE PAIN [None]
  - EYELID EROSION [None]
  - EYELID OEDEMA [None]
  - FACE OEDEMA [None]
  - FATIGUE [None]
  - GENITAL RASH [None]
  - GLOSSODYNIA [None]
  - JOINT EFFUSION [None]
  - LACRIMATION INCREASED [None]
  - LIP HAEMORRHAGE [None]
  - MASS [None]
  - OEDEMA [None]
  - PLEURAL EFFUSION [None]
  - PO2 DECREASED [None]
  - PRURITUS GENERALISED [None]
  - SKIN ULCER [None]
  - STOMATITIS [None]
  - STRIDOR [None]
  - TONGUE DISORDER [None]
